FAERS Safety Report 16869515 (Version 2)
Quarter: 2019Q4

REPORT INFORMATION
  Report Type: Spontaneous
  Country: US (occurrence: US)
  Receive Date: 20190930
  Receipt Date: 20191016
  Transmission Date: 20200122
  Serious: Yes (Other)
  Sender: FDA-Public Use
  Company Number: US-AKORN PHARMACEUTICALS-2019AKN02038

PATIENT
  Age: 22 Year
  Sex: Female
  Weight: 61.22 kg

DRUGS (3)
  1. MYORISAN [Suspect]
     Active Substance: ISOTRETINOIN
     Indication: ACNE CYSTIC
     Dosage: 20 MG, 2X/DAY
     Route: 048
     Dates: start: 20190528, end: 20190725
  2. LEXAPRO [Concomitant]
     Active Substance: ESCITALOPRAM OXALATE
     Dosage: 20 MG, 2X/DAY
  3. YAZ [Concomitant]
     Active Substance: DROSPIRENONE\ETHINYL ESTRADIOL

REACTIONS (7)
  - Stress [Unknown]
  - Aspartate aminotransferase increased [Recovered/Resolved]
  - Alanine aminotransferase increased [Recovered/Resolved]
  - Low density lipoprotein increased [Recovered/Resolved]
  - Anxiety [Recovered/Resolved]
  - Blood cholesterol increased [Recovered/Resolved]
  - Non-high-density lipoprotein cholesterol increased [Recovered/Resolved]

NARRATIVE: CASE EVENT DATE: 2019
